FAERS Safety Report 13024398 (Version 9)
Quarter: 2017Q4

REPORT INFORMATION
  Report Type: Spontaneous
  Country: US (occurrence: US)
  Receive Date: 20161213
  Receipt Date: 20171130
  Transmission Date: 20180320
  Serious: Yes (Hospitalization)
  Sender: FDA-Public Use
  Company Number: US-ACTELION-A-NJ2016-145782

PATIENT
  Age: 70 Year
  Sex: Female
  Weight: 84.35 kg

DRUGS (7)
  1. VELETRI [Suspect]
     Active Substance: EPOPROSTENOL
     Dosage: 41 NG/KG, PER MIN
     Route: 042
     Dates: start: 20150619
  2. VELETRI [Suspect]
     Active Substance: EPOPROSTENOL
     Indication: PULMONARY ARTERIAL HYPERTENSION
     Dosage: 45 NG/KG, PER MIN
     Route: 042
  3. LETAIRIS [Suspect]
     Active Substance: AMBRISENTAN
     Indication: PRODUCT USED FOR UNKNOWN INDICATION
     Dosage: UNK
     Route: 065
     Dates: start: 20161222, end: 20161231
  4. BUMETANIDE. [Concomitant]
     Active Substance: BUMETANIDE
     Route: 065
  5. OPSUMIT [Suspect]
     Active Substance: MACITENTAN
     Indication: PULMONARY ARTERIAL HYPERTENSION
     Route: 048
  6. VELETRI [Suspect]
     Active Substance: EPOPROSTENOL
     Dosage: 49 NG/KG, PER MIN
     Route: 042
  7. COUMADIN [Concomitant]
     Active Substance: WARFARIN SODIUM

REACTIONS (23)
  - Urinary tract infection [Unknown]
  - Headache [Not Recovered/Not Resolved]
  - Acute respiratory failure [Unknown]
  - Atrial fibrillation [Unknown]
  - Fluid overload [Not Recovered/Not Resolved]
  - Bronchitis [Unknown]
  - Presyncope [Unknown]
  - Weight increased [Unknown]
  - Dyspnoea exertional [Unknown]
  - Renal failure [Unknown]
  - Peripheral venous disease [Unknown]
  - Oedema peripheral [Not Recovered/Not Resolved]
  - Drug intolerance [Unknown]
  - Dyspnoea [Unknown]
  - Chest discomfort [Unknown]
  - Fluid retention [Unknown]
  - Pain in jaw [Not Recovered/Not Resolved]
  - Erythema [Unknown]
  - Cardiac failure congestive [Unknown]
  - Device leakage [Recovered/Resolved]
  - Oedema [Not Recovered/Not Resolved]
  - Respiratory tract congestion [Unknown]
  - Walking aid user [Not Recovered/Not Resolved]

NARRATIVE: CASE EVENT DATE: 20161205
